FAERS Safety Report 19039861 (Version 1)
Quarter: 2021Q1

REPORT INFORMATION
  Report Type: Report from Study
  Country: NL (occurrence: NL)
  Receive Date: 20210322
  Receipt Date: 20210322
  Transmission Date: 20210420
  Serious: Yes (Death)
  Sender: FDA-Public Use
  Company Number: NL-PFIZER INC-2021292016

PATIENT
  Age: 30 Year
  Sex: Male

DRUGS (1)
  1. CYTARABINE. [Suspect]
     Active Substance: CYTARABINE
     Dosage: UNK

REACTIONS (5)
  - Lung disorder [Fatal]
  - Petechiae [Fatal]
  - Gastrointestinal necrosis [Fatal]
  - Ileus paralytic [Fatal]
  - Intestinal dilatation [Fatal]
